FAERS Safety Report 5936072-2 (Version None)
Quarter: 2008Q4

REPORT INFORMATION
  Report Type: 
  Country: None (occurrence: None)
  Receive Date: 20081030
  Receipt Date: 20081020
  Transmission Date: 20090506
  Serious: Yes (Other)
  Sender: FDA-Public Use
  Company Number: US-JNJFOC-20081005336

PATIENT
  Age: 56 Year
  Sex: Female

DRUGS (8)
  1. REMICADE [Suspect]
     Indication: COLITIS ULCERATIVE
     Dosage: 11 INFUSIONS ON UNSPECIFIED DATES. DOSE REPORTED AS 10 MG/KG EVERY 8 WEEKS AND 800 MG EVERY 6 WEEKS.
     Route: 042
  2. COLAZOL [Concomitant]
  3. DIOVAN [Concomitant]
  4. FOLGARD [Concomitant]
  5. LIPITOR [Concomitant]
  6. PREDNISONE TAB [Concomitant]
  7. PRIMROSE [Concomitant]
  8. PURINETHOL [Concomitant]

REACTIONS (1)
  - MALIGNANT MELANOMA IN SITU [None]
